FAERS Safety Report 10042658 (Version 1)
Quarter: 2014Q1

REPORT INFORMATION
  Report Type: Spontaneous
  Country: US (occurrence: US)
  Receive Date: 20140327
  Receipt Date: 20140327
  Transmission Date: 20141002
  Serious: Yes (Hospitalization, Other)
  Sender: FDA-Public Use
  Company Number: US-ASTRAZENECA-2014SE19554

PATIENT
  Age: 88 Year
  Sex: 0

DRUGS (5)
  1. NEXIUM [Suspect]
     Route: 048
  2. PRILOSEC [Suspect]
     Route: 048
  3. PROTONIX [Concomitant]
  4. AMOXICILLIN [Concomitant]
  5. UNASYN [Concomitant]

REACTIONS (6)
  - Diverticulum [Unknown]
  - Neoplasm malignant [Unknown]
  - Malabsorption [Unknown]
  - Pain [Unknown]
  - Diarrhoea [Unknown]
  - Drug dose omission [Unknown]
